FAERS Safety Report 8972777 (Version 2)
Quarter: 2014Q2

REPORT INFORMATION
  Report Type: Report from Study
  Country: CA (occurrence: CA)
  Receive Date: 20121218
  Receipt Date: 20140616
  Transmission Date: 20141212
  Serious: Yes (Other)
  Sender: FDA-Public Use
  Company Number: CA-ROCHE-1169100

PATIENT
  Sex: Male
  Weight: 137.15 kg

DRUGS (2)
  1. XOLAIR [Suspect]
     Indication: ASTHMA
     Dosage: 375 MG, UNK
     Route: 058
     Dates: start: 20081006
  2. PREDNISONE [Concomitant]
     Indication: PRODUCT USED FOR UNKNOWN INDICATION
     Dosage: UNK
     Route: 065
     Dates: start: 20081112

REACTIONS (8)
  - Pemphigus [Recovering/Resolving]
  - Hypotension [Unknown]
  - Feeling drunk [Unknown]
  - Fatigue [Unknown]
  - Cough [Unknown]
  - Increased bronchial secretion [Unknown]
  - Productive cough [Unknown]
  - Ear discomfort [Unknown]
